FAERS Safety Report 6303880-8 (Version None)
Quarter: 2009Q3

REPORT INFORMATION
  Report Type: 
  Country: None (occurrence: None)
  Receive Date: 20090807
  Receipt Date: 20090807
  Transmission Date: 20100115
  Serious: Yes (Hospitalization)
  Sender: FDA-Public Use
  Company Number: None

PATIENT
  Sex: Male
  Weight: 109.8 kg

DRUGS (3)
  1. METHOTREXATE [Suspect]
     Dosage: 1980 MG
  2. PEG-L ASPARAGINASE (K-H) [Suspect]
     Dosage: 11600 IU
  3. VINCRISTINE SULFATE [Suspect]
     Dosage: 10 MG

REACTIONS (3)
  - OESOPHAGITIS [None]
  - PANCYTOPENIA [None]
  - TRACHEAL INFLAMMATION [None]
